FAERS Safety Report 18905034 (Version 1)
Quarter: 2021Q1

REPORT INFORMATION
  Report Type: Spontaneous
  Country: US (occurrence: US)
  Receive Date: 20210217
  Receipt Date: 20210217
  Transmission Date: 20210420
  Serious: Yes (Other)
  Sender: FDA-Public Use
  Company Number: US-NOVOPROD-788296

PATIENT
  Sex: Female

DRUGS (2)
  1. VICTOZA [Suspect]
     Active Substance: LIRAGLUTIDE
     Indication: DIABETES MELLITUS
     Dosage: UNK
     Route: 058
  2. TRESIBA [Suspect]
     Active Substance: INSULIN DEGLUDEC
     Indication: DIABETES MELLITUS
     Dosage: UNK
     Route: 058

REACTIONS (7)
  - Blindness [Unknown]
  - Leg amputation [Unknown]
  - Diabetes mellitus inadequate control [Not Recovered/Not Resolved]
  - Coronary artery disease [Unknown]
  - Neuropathy peripheral [Unknown]
  - Diabetic retinopathy [Unknown]
  - Glaucoma [Unknown]
